FAERS Safety Report 9916089 (Version 2)
Quarter: 2014Q1

REPORT INFORMATION
  Report Type: Spontaneous
  Country: US (occurrence: US)
  Receive Date: 20140221
  Receipt Date: 20140318
  Transmission Date: 20141002
  Serious: No
  Sender: FDA-Public Use
  Company Number: US-009507513-1402USA010489

PATIENT
  Age: 67 Year
  Sex: Female
  Weight: 71.66 kg

DRUGS (2)
  1. OXYTROL FOR WOMEN [Suspect]
     Indication: URINARY INCONTINENCE
     Dosage: 1 DF, Q4D
     Route: 062
     Dates: start: 201309, end: 201402
  2. LOVAZA [Concomitant]
     Indication: BLOOD CHOLESTEROL
     Dosage: UNK, UNKNOWN

REACTIONS (5)
  - Application site swelling [Unknown]
  - Urticaria [Recovered/Resolved]
  - Application site discolouration [Unknown]
  - Application site rash [Recovered/Resolved]
  - Application site erythema [Unknown]
